FAERS Safety Report 18493132 (Version 3)
Quarter: 2021Q1

REPORT INFORMATION
  Report Type: Report from Study
  Country: US (occurrence: US)
  Receive Date: 20201111
  Receipt Date: 20210126
  Transmission Date: 20210419
  Serious: Yes (Other)
  Sender: FDA-Public Use
  Company Number: US-SHIRE-US202030874

PATIENT
  Sex: Female

DRUGS (1)
  1. HUMAN IMMUNOGLOBULIN; HYALURONIDASE [Suspect]
     Active Substance: HUMAN IMMUNOGLOBULIN G\HYALURONIDASE RECOMBINANT HUMAN
     Indication: IMMUNODEFICIENCY COMMON VARIABLE
     Route: 065

REACTIONS (15)
  - Insomnia [Unknown]
  - Malaise [Unknown]
  - Bursitis [Unknown]
  - Abdominal distension [Unknown]
  - Tendon rupture [Unknown]
  - Peripheral swelling [None]
  - Tendonitis [Unknown]
  - Ocular hyperaemia [None]
  - Herpes zoster [Unknown]
  - Irritable bowel syndrome [Unknown]
  - Feeling abnormal [Unknown]
  - Rheumatoid arthritis [Unknown]
  - Thirst [Unknown]
  - Connective tissue disorder [Unknown]
  - Fatigue [Unknown]
